FAERS Safety Report 16293760 (Version 1)
Quarter: 2019Q2

REPORT INFORMATION
  Report Type: Spontaneous
  Country: PL (occurrence: PL)
  Receive Date: 20190509
  Receipt Date: 20190509
  Transmission Date: 20190711
  Serious: Yes (Life-Threatening)
  Sender: FDA-Public Use
  Company Number: PL-SHIRE-PL201914452

PATIENT

DRUGS (2)
  1. FLEXBUMIN [Suspect]
     Active Substance: ALBUMIN HUMAN
     Indication: NEPHROTIC SYNDROME
     Route: 042
     Dates: start: 20160708
  2. HUMAN ALBUMIN [Concomitant]
     Active Substance: ALBUMIN HUMAN
     Indication: NEPHROTIC SYNDROME
     Dosage: UNK
     Route: 042

REACTIONS (1)
  - Rash erythematous [Unknown]
